FAERS Safety Report 18867003 (Version 1)
Quarter: 2021Q1

REPORT INFORMATION
  Report Type: Report from Study
  Country: None (occurrence: CO)
  Receive Date: 20210208
  Receipt Date: 20210208
  Transmission Date: 20210420
  Serious: Yes (Other)
  Sender: FDA-Public Use
  Company Number: CO-ABBVIE-21K-036-3764619-00

PATIENT
  Age: 50 Year
  Sex: Male
  Weight: 83 kg

DRUGS (1)
  1. IMBRUVICA [Suspect]
     Active Substance: IBRUTINIB
     Indication: CHRONIC LYMPHOCYTIC LEUKAEMIA
     Route: 048
     Dates: start: 20190906

REACTIONS (1)
  - Hepatic lesion [Recovered/Resolved]

NARRATIVE: CASE EVENT DATE: 202011
